FAERS Safety Report 7815332-4 (Version None)
Quarter: 2011Q4

REPORT INFORMATION
  Report Type: 
  Country: None (occurrence: None)
  Receive Date: 20111014
  Receipt Date: 20111006
  Transmission Date: 20120403
  Serious: Yes (Other)
  Sender: FDA-Public Use
  Company Number: US-PFIZER INC-2011214705

PATIENT
  Age: 33 Year
  Sex: Female

DRUGS (8)
  1. EFFEXOR [Suspect]
     Dosage: UNK
  2. EFFEXOR XR [Interacting]
     Dosage: UNK
  3. ADDERALL 5 [Interacting]
     Indication: ATTENTION DEFICIT/HYPERACTIVITY DISORDER
     Dosage: UNK
     Dates: start: 20110101
  4. BISMUTH SUBSALICYLATE [Suspect]
     Indication: DYSPEPSIA
  5. TRIMETHOPRIM [Concomitant]
     Indication: ACNE
     Dosage: UNK
  6. BISMUTH SUBSALICYLATE [Suspect]
     Indication: GASTROOESOPHAGEAL REFLUX DISEASE
     Dosage: UNK
  7. XANAX [Concomitant]
  8. NIZORAL [Concomitant]
     Indication: ACNE

REACTIONS (3)
  - DRUG INTERACTION [None]
  - ANXIETY [None]
  - PARAESTHESIA [None]
